FAERS Safety Report 4952425-3 (Version None)
Quarter: 2006Q1

REPORT INFORMATION
  Report Type: 
  Country: None (occurrence: None)
  Receive Date: 20060317
  Receipt Date: 20060306
  Transmission Date: 20060701
  Serious: Yes (Life-Threatening, Hospitalization)
  Sender: FDA-Public Use
  Company Number: 2005EU001724

PATIENT
  Age: 54 Year
  Sex: Male

DRUGS (9)
  1. FK506 (TACROLIMUS CAPSULES) [Suspect]
     Indication: RENAL TRANSPLANT
     Dosage: ORAL
     Route: 048
     Dates: start: 20040601
  2. DACLIZUMAB (DACLIZUMAB) [Suspect]
     Indication: RENAL TRANSPLANT
     Dosage: 150 MG IV NOS
     Route: 042
     Dates: start: 20040605, end: 20040618
  3. MYCOPHENOLATE MOFETIL [Suspect]
     Indication: RENAL TRANSPLANT
     Dosage: 2.00 G BID ORAL
     Route: 048
     Dates: start: 20040510, end: 20040601
  4. PREDNISONE [Suspect]
     Indication: RENAL TRANSPLANT
     Dosage: 35.00 MG, ORAL
     Route: 048
     Dates: start: 20040606, end: 20040701
  5. METOPROLOL TARTRATE [Concomitant]
  6. ASPIRIN [Concomitant]
  7. CIPROFLOXACIN [Concomitant]
  8. FLUVASTATIN SODIUM [Concomitant]
  9. SULFAMETHOXAZOLE [Concomitant]

REACTIONS (2)
  - ILEUS [None]
  - MYOCARDIAL INFARCTION [None]
